FAERS Safety Report 16730448 (Version 6)
Quarter: 2021Q3

REPORT INFORMATION
  Report Type: Spontaneous
  Country: PT (occurrence: PT)
  Receive Date: 20190822
  Receipt Date: 20210716
  Transmission Date: 20211014
  Serious: Yes (Other)
  Sender: FDA-Public Use
  Company Number: PT-PFIZER INC-2019358529

PATIENT
  Age: 68 Year
  Sex: Female
  Weight: 62 kg

DRUGS (3)
  1. NIMODIPINE. [Concomitant]
     Active Substance: NIMODIPINE
     Indication: HYPERTENSION
     Dosage: UNK
  2. AMIODARONE HCL [Suspect]
     Active Substance: AMIODARONE HYDROCHLORIDE
     Indication: ATRIAL FIBRILLATION
     Dosage: 200 MG, 1X/DAY
  3. WARFARIN [Concomitant]
     Active Substance: WARFARIN
     Indication: ATRIAL FIBRILLATION
     Dosage: UNK

REACTIONS (5)
  - Pleural thickening [Recovered/Resolved]
  - Bronchiectasis [Recovered/Resolved]
  - Pulmonary fibrosis [Not Recovered/Not Resolved]
  - Pulmonary toxicity [Not Recovered/Not Resolved]
  - Cough [Recovered/Resolved]
